FAERS Safety Report 26011831 (Version 1)
Quarter: 2025Q4

REPORT INFORMATION
  Report Type: Other
  Country: CA (occurrence: CA)
  Receive Date: 20251107
  Receipt Date: 20251107
  Transmission Date: 20260117
  Serious: Yes (Other)
  Sender: PFIZER
  Company Number: CA-PFIZER INC-202500218450

PATIENT
  Age: 27 Year
  Sex: Male

DRUGS (6)
  1. ADALIMUMAB [Suspect]
     Active Substance: ADALIMUMAB
     Indication: Colitis
     Dosage: UNK
  2. USTEKINUMAB [Suspect]
     Active Substance: USTEKINUMAB
     Indication: Colitis
     Dosage: UNK
  3. AMINOSALICYLIC ACID [Concomitant]
     Active Substance: AMINOSALICYLIC ACID
     Indication: Colitis
  4. AZATHIOPRINE [Concomitant]
     Active Substance: AZATHIOPRINE
     Indication: Colitis
     Dosage: UNK
  5. ENTYVIO [Concomitant]
     Active Substance: VEDOLIZUMAB
     Indication: Colitis
     Dosage: UNK
  6. TOFACITINIB [Concomitant]
     Active Substance: TOFACITINIB
     Indication: Colitis
     Dosage: UNK

REACTIONS (2)
  - Colitis ulcerative [Unknown]
  - Treatment failure [Unknown]
